FAERS Safety Report 18940348 (Version 1)
Quarter: 2021Q1

REPORT INFORMATION
  Report Type: Spontaneous
  Country: US (occurrence: US)
  Receive Date: 20210225
  Receipt Date: 20210225
  Transmission Date: 20210420
  Serious: Yes (Hospitalization)
  Sender: FDA-Public Use
  Company Number: None

PATIENT
  Age: 44 Year
  Sex: Male
  Weight: 180 kg

DRUGS (10)
  1. SIMVISTATIN [Concomitant]
     Active Substance: SIMVASTATIN
  2. FLEXERIL [Concomitant]
     Active Substance: CYCLOBENZAPRINE HYDROCHLORIDE
  3. PAXIL [Concomitant]
     Active Substance: PAROXETINE HYDROCHLORIDE
  4. TOPIRAMATE. [Concomitant]
     Active Substance: TOPIRAMATE
  5. MULTIVITAMIN [Concomitant]
     Active Substance: VITAMINS
  6. MONTELUKAST 10MG TABLETS [Suspect]
     Active Substance: MONTELUKAST\MONTELUKAST SODIUM
     Indication: ASTHMA
     Dosage: ?          QUANTITY:1 TABLET(S);?
     Route: 048
     Dates: start: 20201214, end: 20210113
  7. ADVAIR HFA [Concomitant]
     Active Substance: FLUTICASONE PROPIONATE\SALMETEROL XINAFOATE
  8. LOSARTAN. [Concomitant]
     Active Substance: LOSARTAN
  9. HCTZ [Concomitant]
     Active Substance: HYDROCHLOROTHIAZIDE
  10. MELOXICAM. [Concomitant]
     Active Substance: MELOXICAM

REACTIONS (14)
  - Muscle twitching [None]
  - Blood sodium decreased [None]
  - Sleep disorder [None]
  - Confusional state [None]
  - Blood potassium decreased [None]
  - Fall [None]
  - Renal impairment [None]
  - Abnormal dreams [None]
  - Somnolence [None]
  - Hallucination [None]
  - White blood cell count increased [None]
  - Memory impairment [None]
  - Hepatic enzyme increased [None]
  - Sleep talking [None]

NARRATIVE: CASE EVENT DATE: 20210223
